FAERS Safety Report 7168956-4 (Version None)
Quarter: 2010Q4

REPORT INFORMATION
  Report Type: 
  Country: None (occurrence: None)
  Receive Date: 20101216
  Receipt Date: 20100114
  Transmission Date: 20110411
  Serious: No
  Sender: FDA-Public Use
  Company Number: US-AMGEN-KDL386014

PATIENT

DRUGS (3)
  1. ENBREL [Suspect]
     Indication: RHEUMATOID ARTHRITIS
     Dosage: 50 MG, QWK
     Route: 058
     Dates: start: 20030101
  2. HYDROXYCHLOROQUINE [Concomitant]
     Dosage: 400 MG, QD
  3. METHOTREXATE [Concomitant]
     Dosage: 15 MG, QWK
     Route: 048

REACTIONS (5)
  - EXCORIATION [None]
  - FALL [None]
  - HAND FRACTURE [None]
  - JOINT INJURY [None]
  - SKIN HYPERTROPHY [None]
